FAERS Safety Report 5170488-X (Version None)
Quarter: 2006Q4

REPORT INFORMATION
  Report Type: 
  Country: None (occurrence: None)
  Receive Date: 20061204
  Receipt Date: 20061122
  Transmission Date: 20070319
  Serious: Yes (Hospitalization)
  Sender: FDA-Public Use
  Company Number: 2006140021

PATIENT
  Age: 30 Year
  Sex: Male
  Weight: 75 kg

DRUGS (4)
  1. DALACIN C (CLINDAMYCIN HYDROCHLORIDE) [Suspect]
     Indication: TOOTH DISORDER
  2. DALACIN C (CLINDAMYCIN HYDROCHLORIDE) [Suspect]
     Indication: TOOTH EXTRACTION
  3. AUGMENTIN '125' [Concomitant]
  4. METRONIDAZOLE [Concomitant]

REACTIONS (6)
  - DENTAL OPERATION [None]
  - DYSPNOEA [None]
  - ERYTHEMA MIGRANS [None]
  - LOCALISED OEDEMA [None]
  - SCAB [None]
  - STEVENS-JOHNSON SYNDROME [None]
